FAERS Safety Report 7998117-8 (Version None)
Quarter: 2011Q4

REPORT INFORMATION
  Report Type: 
  Country: None (occurrence: None)
  Receive Date: 20111221
  Receipt Date: 20110210
  Transmission Date: 20120403
  Serious: No
  Sender: FDA-Public Use
  Company Number: US-GLAXOSMITHKLINE-A0912894A

PATIENT
  Age: 72 Year
  Sex: Female

DRUGS (9)
  1. LOVAZA [Suspect]
     Indication: BLOOD TRIGLYCERIDES INCREASED
     Dosage: 2CAP TWICE PER DAY
     Route: 048
     Dates: start: 20070101
  2. CALCIUM CARBONATE [Concomitant]
  3. LOTREL [Concomitant]
  4. ASPIRIN [Concomitant]
  5. CENTRUM SILVER [Concomitant]
  6. COQ10 [Concomitant]
     Dosage: 200MG PER DAY
  7. CYANOCOBALAMIN [Concomitant]
  8. BIOTIN [Concomitant]
  9. SIMVASTATIN [Concomitant]

REACTIONS (3)
  - NAUSEA [None]
  - DYSPEPSIA [None]
  - HYPERTENSION [None]
